FAERS Safety Report 9070478 (Version 1)
Quarter: 2013Q1

REPORT INFORMATION
  Report Type: Report from Study
  Country: CA (occurrence: CA)
  Receive Date: 20130215
  Receipt Date: 20130215
  Transmission Date: 20140127
  Serious: Yes (Other)
  Sender: FDA-Public Use
  Company Number: CA-JNJFOC-20130203446

PATIENT
  Age: 50 Year
  Sex: Female
  Weight: 63.5 kg

DRUGS (4)
  1. REMICADE [Suspect]
     Indication: CROHN^S DISEASE
     Route: 042
     Dates: start: 20090925
  2. REMICADE [Suspect]
     Indication: CROHN^S DISEASE
     Dosage: 23RD INFUSION
     Route: 042
     Dates: start: 20121211
  3. TEMAZEPAM [Concomitant]
     Route: 065
  4. CALCIUM AND VITAMIN D [Concomitant]
     Route: 065

REACTIONS (3)
  - Fall [Recovering/Resolving]
  - Wrist fracture [Recovering/Resolving]
  - Infection [Recovering/Resolving]
